FAERS Safety Report 11080952 (Version 1)
Quarter: 2015Q2

REPORT INFORMATION
  Report Type: Spontaneous
  Country: RO (occurrence: RO)
  Receive Date: 20150501
  Receipt Date: 20150501
  Transmission Date: 20150821
  Serious: Yes (Other)
  Sender: FDA-Public Use
  Company Number: RO-ROCHE-1571843

PATIENT
  Age: 11 Year
  Sex: Male
  Weight: 52 kg

DRUGS (4)
  1. MONTELUKAST [Concomitant]
     Active Substance: MONTELUKAST SODIUM
  2. XYZAL [Concomitant]
     Active Substance: LEVOCETIRIZINE DIHYDROCHLORIDE
  3. XOLAIR [Suspect]
     Active Substance: OMALIZUMAB
     Indication: ASTHMA
     Route: 058
     Dates: start: 20150324, end: 20150324
  4. PULMICORT TURBUHALER [Concomitant]
     Active Substance: BUDESONIDE

REACTIONS (2)
  - Urticaria [Recovered/Resolved]
  - Bronchospasm [Recovered/Resolved]

NARRATIVE: CASE EVENT DATE: 20150324
